FAERS Safety Report 19374858 (Version 1)
Quarter: 2021Q2

REPORT INFORMATION
  Report Type: Spontaneous
  Country: US (occurrence: US)
  Receive Date: 20210604
  Receipt Date: 20210604
  Transmission Date: 20210717
  Serious: Yes (Hospitalization)
  Sender: FDA-Public Use
  Company Number: US-MYLANLABS-2021M1032263

PATIENT
  Age: 60 Year
  Sex: Female

DRUGS (4)
  1. TEMOZOLOMIDE. [Suspect]
     Active Substance: TEMOZOLOMIDE
     Indication: PHAEOCHROMOCYTOMA
     Dosage: UNK
     Route: 048
  2. HEPARIN [Suspect]
     Active Substance: HEPARIN SODIUM
     Indication: VENA CAVA THROMBOSIS
     Dosage: UNK
     Route: 065
  3. HEPARIN [Suspect]
     Active Substance: HEPARIN SODIUM
     Indication: ATRIAL THROMBOSIS
  4. OCTREOTIDE. [Concomitant]
     Active Substance: OCTREOTIDE
     Indication: PHAEOCHROMOCYTOMA
     Dosage: FORMULATION: LONG ACTING RELEASE
     Route: 065

REACTIONS (6)
  - Diarrhoea [Unknown]
  - Mental disorder [Unknown]
  - Acute hepatic failure [Unknown]
  - Decreased appetite [Unknown]
  - Heparin-induced thrombocytopenia [Unknown]
  - Ascites [Unknown]
